FAERS Safety Report 7087860-3 (Version None)
Quarter: 2010Q4

REPORT INFORMATION
  Report Type: 
  Country: None (occurrence: None)
  Receive Date: 20101108
  Receipt Date: 20101027
  Transmission Date: 20110411
  Serious: Yes (Other)
  Sender: FDA-Public Use
  Company Number: US-JNJFOC-20101100019

PATIENT
  Sex: Female
  Weight: 90.72 kg

DRUGS (2)
  1. RISPERDAL CONSTA [Suspect]
     Indication: ACCIDENTAL EXPOSURE
     Route: 030
  2. ARMOUR THYROID [Concomitant]
     Route: 048

REACTIONS (3)
  - DEVICE MALFUNCTION [None]
  - EXPOSURE TO CONTAMINATED DEVICE [None]
  - INJURY ASSOCIATED WITH DEVICE [None]
